FAERS Safety Report 8388952 (Version 3)
Quarter: 2013Q1

REPORT INFORMATION
  Report Type: Spontaneous
  Country: FR (occurrence: None)
  Receive Date: 20120120
  Receipt Date: 20130327
  Transmission Date: 20140127
  Serious: Yes (Life-Threatening, Hospitalization)
  Sender: FDA-Public Use
  Company Number: US-2012-10026

PATIENT
  Age: 41 Year
  Sex: Male
  Weight: 77 kg

DRUGS (2)
  1. BUSULFEX [Suspect]
     Indication: ACUTE MYELOID LEUKAEMIA
     Dosage: 3.2 MG/KG, QD, INTRAVENOUS, 232.9 MG MILLIGRAM(S), INTRAVENOUS
     Route: 042
     Dates: start: 20110816
  2. CYCLOPHOSPHAMIDE (CYCLOPHOSPHAMIDE) [Suspect]
     Indication: ACUTE MYELOID LEUKAEMIA
     Dosage: 60 MG/KG, QD, INTRAVENOUS
     Route: 042
     Dates: start: 20110821, end: 20110822

REACTIONS (24)
  - Mucosal inflammation [None]
  - Thrombocytopenia [None]
  - Renal failure [None]
  - Acute respiratory distress syndrome [None]
  - Cholangitis [None]
  - Ventricular dysfunction [None]
  - Bone marrow failure [None]
  - Staphylococcus test positive [None]
  - Enterococcus test positive [None]
  - Renal impairment [None]
  - Jaundice [None]
  - Multi-organ disorder [None]
  - Confusional state [None]
  - Somnolence [None]
  - Miosis [None]
  - Overdose [None]
  - Left ventricular dysfunction [None]
  - Cholelithiasis [None]
  - Neurological decompensation [None]
  - Septic shock [None]
  - Pseudomonas infection [None]
  - Engraftment syndrome [None]
  - Treatment noncompliance [None]
  - Haemoglobin decreased [None]
